FAERS Safety Report 19630620 (Version 1)
Quarter: 2021Q3

REPORT INFORMATION
  Report Type: Spontaneous
  Country: US (occurrence: US)
  Receive Date: 20210728
  Receipt Date: 20210728
  Transmission Date: 20211014
  Serious: No
  Sender: FDA-Public Use
  Company Number: US-SA-2021SA243455

PATIENT
  Age: 20 Year
  Sex: Male

DRUGS (14)
  1. ALBUTEROL HFA [Concomitant]
     Active Substance: ALBUTEROL SULFATE
  2. DUPIXENT [Suspect]
     Active Substance: DUPILUMAB
     Indication: NASAL DISORDER
     Dosage: 300 MG, QOW (300MG/2ML)
     Route: 058
     Dates: start: 20191029
  3. PROAIR HFA [Concomitant]
     Active Substance: ALBUTEROL SULFATE
  4. FAMOTIDINE. [Concomitant]
     Active Substance: FAMOTIDINE
  5. PULMOZYME [Concomitant]
     Active Substance: DORNASE ALFA
  6. CETRIZINE [Concomitant]
     Active Substance: CETIRIZINE HYDROCHLORIDE
  7. DUPIXENT [Suspect]
     Active Substance: DUPILUMAB
     Indication: CYSTIC FIBROSIS
  8. BREO ELLIPTA [Concomitant]
     Active Substance: FLUTICASONE FUROATE\VILANTEROL TRIFENATATE
  9. CALCIUM [Concomitant]
     Active Substance: CALCIUM
  10. FLUTICASONE. [Concomitant]
     Active Substance: FLUTICASONE
  11. MONTELUKAST [Concomitant]
     Active Substance: MONTELUKAST SODIUM
  12. CREON [Concomitant]
     Active Substance: PANCRELIPASE AMYLASE\PANCRELIPASE LIPASE\PANCRELIPASE PROTEASE
  13. MIRALAX [Concomitant]
     Active Substance: POLYETHYLENE GLYCOL 3350
  14. PANTOPRAZOLE [Concomitant]
     Active Substance: PANTOPRAZOLE

REACTIONS (3)
  - Impaired quality of life [Not Recovered/Not Resolved]
  - Product use in unapproved indication [Unknown]
  - Asthma [Not Recovered/Not Resolved]

NARRATIVE: CASE EVENT DATE: 20191029
